FAERS Safety Report 19578853 (Version 1)
Quarter: 2021Q3

REPORT INFORMATION
  Report Type: Report from Study
  Country: US (occurrence: US)
  Receive Date: 20210719
  Receipt Date: 20210719
  Transmission Date: 20211014
  Serious: Yes (Hospitalization)
  Sender: FDA-Public Use
  Company Number: US-JNJFOC-20210733894

PATIENT
  Age: 55 Year
  Sex: Male
  Weight: 88.6 kg

DRUGS (2)
  1. LETAIRIS [Concomitant]
     Active Substance: AMBRISENTAN
  2. UPTRAVI [Suspect]
     Active Substance: SELEXIPAG
     Indication: PULMONARY HYPERTENSION
     Dosage: UPTRAVI 1200 MCG ORALLY 2 TIMES DAILY
     Route: 048

REACTIONS (2)
  - Upper limb fracture [Unknown]
  - Hospitalisation [Unknown]

NARRATIVE: CASE EVENT DATE: 202105
